FAERS Safety Report 26135033 (Version 1)
Quarter: 2025Q4

REPORT INFORMATION
  Report Type: Spontaneous
  Country: JP (occurrence: JP)
  Receive Date: 20251209
  Receipt Date: 20251209
  Transmission Date: 20260118
  Serious: Yes (Death, Other)
  Sender: UNITED THERAPEUTICS
  Company Number: JP-UNITED THERAPEUTICS-UNT-2024-027418

PATIENT
  Age: 72 Year
  Sex: Male

DRUGS (2)
  1. TREPROSTINIL [Suspect]
     Active Substance: TREPROSTINIL
     Indication: Idiopathic interstitial pneumonia
     Dosage: 18 ?G, QID
     Dates: start: 20240827
  2. TREPROSTINIL [Suspect]
     Active Substance: TREPROSTINIL
     Dosage: 72 ?G, QID

REACTIONS (5)
  - Death [Fatal]
  - Idiopathic interstitial pneumonia [Unknown]
  - Cough [Unknown]
  - Dyspnoea [Unknown]
  - Off label use [Unknown]

NARRATIVE: CASE EVENT DATE: 20240827
